FAERS Safety Report 12504160 (Version 1)
Quarter: 2016Q2

REPORT INFORMATION
  Report Type: Spontaneous
  Country: US (occurrence: US)
  Receive Date: 20160628
  Receipt Date: 20160628
  Transmission Date: 20160815
  Serious: Yes (Hospitalization)
  Sender: FDA-Public Use
  Company Number: US-CTI_01933_2016

PATIENT
  Age: 18 Year
  Sex: Female

DRUGS (8)
  1. HYPERSAL [Concomitant]
     Dosage: DF
  2. ALBUTEROL. [Concomitant]
     Active Substance: ALBUTEROL
     Dosage: DF
  3. BETHKIS [Suspect]
     Active Substance: TOBRAMYCIN
     Indication: PRODUCT USED FOR UNKNOWN INDICATION
     Route: 055
     Dates: start: 20160211
  4. PREDNISONE. [Concomitant]
     Active Substance: PREDNISONE
     Dosage: DF
  5. AZITHROMYCIN ANHYDROUS. [Concomitant]
     Active Substance: AZITHROMYCIN ANHYDROUS
     Dosage: DF
  6. LEVOFLOXACIN. [Concomitant]
     Active Substance: LEVOFLOXACIN
     Dosage: DF
  7. ORKAMBI [Suspect]
     Active Substance: IVACAFTOR\LUMACAFTOR
     Indication: CYSTIC FIBROSIS
     Dosage: (200-125 MG); 400-250 MG, BID
     Route: 048
     Dates: start: 20160204
  8. PULMOZYME [Concomitant]
     Active Substance: DORNASE ALFA
     Dosage: DF

REACTIONS (1)
  - Pneumothorax [Unknown]

NARRATIVE: CASE EVENT DATE: 20160616
